FAERS Safety Report 7300765-5 (Version None)
Quarter: 2011Q1

REPORT INFORMATION
  Report Type: 
  Country: None (occurrence: None)
  Receive Date: 20110103
  Receipt Date: 20090821
  Transmission Date: 20110831
  Serious: Yes (Life-Threatening, Hospitalization)
  Sender: FDA-Public Use
  Company Number: US-003329

PATIENT
  Age: 56 Year
  Sex: Female

DRUGS (12)
  1. VICODIN [Concomitant]
  2. LANTUS [Concomitant]
  3. MULTIHANCE [Suspect]
     Indication: STAPHYLOCOCCAL INFECTION
     Dosage: 15ML ONCE  INTRAVENOUS
     Route: 042
     Dates: start: 20090821, end: 20090821
  4. MULTIHANCE [Suspect]
     Indication: NUCLEAR MAGNETIC RESONANCE IMAGING
     Dosage: 15ML ONCE  INTRAVENOUS
     Route: 042
     Dates: start: 20090821, end: 20090821
  5. CRESTOR [Concomitant]
  6. LEVAQUIN [Concomitant]
  7. CLINDAMYCIN [Concomitant]
  8. PIOGLITAZONE/METFORMIN (METFORMIN HYDROCHLORIDE; PIOGLITAZONE HYDROCHL [Concomitant]
  9. FOSAMAX [Concomitant]
  10. NORTRIPTYLINE HCL [Concomitant]
  11. HUMALOG [Concomitant]
  12. ASPIRIN [Concomitant]

REACTIONS (1)
  - ANAPHYLACTIC SHOCK [None]
